FAERS Safety Report 9718712 (Version 2)
Quarter: 2013Q4

REPORT INFORMATION
  Report Type: Not Available
  Country: US (occurrence: US)
  Receive Date: 20131125
  Receipt Date: 20131125
  Transmission Date: 20140711
  Serious: Yes (Other)
  Sender: FDA-Public Use
  Company Number: US-H. LUNDBECK A/S-DKLU1092909

PATIENT
  Sex: Female

DRUGS (9)
  1. ONFI [Suspect]
     Indication: LENNOX-GASTAUT SYNDROME
     Route: 048
     Dates: start: 20130612
  2. ONFI [Suspect]
     Indication: EPILEPSY
     Route: 048
     Dates: start: 20130613
  3. ONFI [Suspect]
     Route: 048
     Dates: start: 20130614
  4. ONFI [Suspect]
     Route: 048
     Dates: start: 20130614
  5. ONFI [Suspect]
     Route: 048
     Dates: start: 20130626
  6. VIMPAT [Concomitant]
     Indication: PRODUCT USED FOR UNKNOWN INDICATION
     Route: 048
  7. VALPROIC ACID [Concomitant]
     Indication: PRODUCT USED FOR UNKNOWN INDICATION
     Route: 048
  8. CALCIUM CARBONATE [Concomitant]
     Indication: PRODUCT USED FOR UNKNOWN INDICATION
     Route: 048
  9. FLAXSEED [Concomitant]
     Indication: PRODUCT USED FOR UNKNOWN INDICATION

REACTIONS (6)
  - Grand mal convulsion [Recovering/Resolving]
  - Convulsion [Recovering/Resolving]
  - Diarrhoea [Recovering/Resolving]
  - Abnormal behaviour [Recovering/Resolving]
  - Personality change [Recovering/Resolving]
  - Verbal abuse [Recovering/Resolving]
